FAERS Safety Report 4824844-7 (Version None)
Quarter: 2005Q4

REPORT INFORMATION
  Report Type: 
  Country: None (occurrence: None)
  Receive Date: 20051109
  Receipt Date: 20051109
  Transmission Date: 20060501
  Serious: Yes (Hospitalization)
  Sender: FDA-Public Use
  Company Number: None

PATIENT
  Sex: Female
  Weight: 66.6788 kg

DRUGS (3)
  1. CETUXIMAB [Suspect]
     Indication: LUNG NEOPLASM MALIGNANT
     Dosage: 656MG    X 2 DOSES    IV DRIP
     Route: 041
     Dates: start: 20051010, end: 20051027
  2. CARBOPLATIN [Suspect]
     Indication: LUNG NEOPLASM MALIGNANT
     Dosage: 379 MG   X 1 DOSE   IV DRIP
     Route: 041
     Dates: start: 20051010, end: 20051027
  3. PACLITAXEL [Suspect]
     Indication: LUNG NEOPLASM MALIGNANT
     Dosage: 164 MG   X 2 DOSES    IV DRIP
     Route: 041
     Dates: start: 20051010, end: 20051027

REACTIONS (1)
  - UNEVALUABLE EVENT [None]
